FAERS Safety Report 23462701 (Version 1)
Quarter: 2024Q1

REPORT INFORMATION
  Report Type: Spontaneous
  Country: US (occurrence: US)
  Receive Date: 20240131
  Receipt Date: 20240131
  Transmission Date: 20240410
  Serious: No
  Sender: FDA-Public Use
  Company Number: US-MYLANLABS-2023M1138574

PATIENT
  Sex: Female
  Weight: 108.86 kg

DRUGS (2)
  1. GABAPENTIN [Suspect]
     Active Substance: GABAPENTIN
     Indication: Neuralgia
     Dosage: 75 MILLIGRAM
     Route: 065
     Dates: start: 201704, end: 201707
  2. TIZANIDINE [Concomitant]
     Active Substance: TIZANIDINE
     Indication: Product used for unknown indication
     Dosage: 4 MILLIGRAM
     Route: 065

REACTIONS (4)
  - Gout [Unknown]
  - Pain in extremity [Unknown]
  - Joint swelling [Unknown]
  - Off label use [Unknown]
